FAERS Safety Report 17760647 (Version 4)
Quarter: 2020Q4

REPORT INFORMATION
  Report Type: Report from Study
  Country: US (occurrence: US)
  Receive Date: 20200508
  Receipt Date: 20201106
  Transmission Date: 20210113
  Serious: No
  Sender: FDA-Public Use
  Company Number: NVSC2020US125201

PATIENT
  Sex: Female

DRUGS (2)
  1. COSENTYX [Suspect]
     Active Substance: SECUKINUMAB
     Indication: PSORIASIS
  2. COSENTYX [Suspect]
     Active Substance: SECUKINUMAB
     Indication: PSORIATIC ARTHROPATHY
     Dosage: 300 MG, UNKNOWN (EVERY WEEK FOR 5 WEEKS THEN EVERY 4 WEEKS)
     Route: 058
     Dates: start: 20200312

REACTIONS (6)
  - Arthralgia [Recovered/Resolved]
  - Muscular weakness [Unknown]
  - Product prescribing error [Unknown]
  - Product dose omission issue [Unknown]
  - Psoriasis [Recovered/Resolved]
  - Musculoskeletal stiffness [Unknown]
